FAERS Safety Report 19972798 (Version 1)
Quarter: 2021Q4

REPORT INFORMATION
  Report Type: Spontaneous
  Country: US (occurrence: US)
  Receive Date: 20211018
  Receipt Date: 20211018
  Transmission Date: 20220304
  Serious: No
  Sender: FDA-Public Use
  Company Number: None

PATIENT
  Age: 44 Year
  Sex: Female

DRUGS (1)
  1. PONVORY [Suspect]
     Active Substance: PONESIMOD
     Route: 048
     Dates: start: 202109, end: 20211016

REACTIONS (2)
  - Dyspnoea [None]
  - Total lung capacity abnormal [None]

NARRATIVE: CASE EVENT DATE: 20211005
